FAERS Safety Report 14082364 (Version 10)
Quarter: 2018Q1

REPORT INFORMATION
  Report Type: Spontaneous
  Country: US (occurrence: US)
  Receive Date: 20171013
  Receipt Date: 20180103
  Transmission Date: 20180508
  Serious: Yes (Hospitalization, Other)
  Sender: FDA-Public Use
  Company Number: US-GLAXOSMITHKLINE-US2017GSK155820

PATIENT
  Age: 64 Year
  Sex: Female

DRUGS (10)
  1. PROAIR HFA [Suspect]
     Active Substance: ALBUTEROL SULFATE
     Indication: PRODUCT USED FOR UNKNOWN INDICATION
     Dosage: UNK
  2. VENTOLIN HFA [Suspect]
     Active Substance: ALBUTEROL SULFATE
     Indication: DYSPNOEA
  3. DUONEB [Concomitant]
     Active Substance: ALBUTEROL SULFATE\IPRATROPIUM BROMIDE
  4. MEDROL [Concomitant]
     Active Substance: METHYLPREDNISOLONE
  5. PROAIR HFA [Concomitant]
     Active Substance: ALBUTEROL SULFATE
  6. VENTOLIN HFA [Suspect]
     Active Substance: ALBUTEROL SULFATE
     Indication: CHRONIC OBSTRUCTIVE PULMONARY DISEASE
     Dosage: 2 PUFF(S), QID
     Route: 055
     Dates: start: 201201
  7. ASMANEX HFA [Concomitant]
     Active Substance: MOMETASONE FUROATE
  8. VENTOLIN HFA [Suspect]
     Active Substance: ALBUTEROL SULFATE
     Indication: BRONCHIAL OEDEMA
     Dosage: 1 PUFF(S), QD
  9. VENTOLIN HFA [Suspect]
     Active Substance: ALBUTEROL SULFATE
     Indication: BRONCHIAL OBSTRUCTION
     Dosage: 2 PUFF(S), PRN
     Route: 055
  10. ALBUTEROL NEBULIZER [Concomitant]
     Active Substance: ALBUTEROL

REACTIONS (17)
  - Unevaluable event [Unknown]
  - Condition aggravated [Unknown]
  - Exposure to toxic agent [Unknown]
  - Asthenia [Unknown]
  - Memory impairment [Unknown]
  - Intentional underdose [Recovering/Resolving]
  - Overdose [Unknown]
  - Oxygen therapy [Unknown]
  - Expired product administered [Unknown]
  - Dyspnoea [Recovered/Resolved]
  - Cough [Recovered/Resolved]
  - Acute respiratory failure [Recovered/Resolved]
  - Bronchial disorder [Not Recovered/Not Resolved]
  - Drug ineffective [Recovering/Resolving]
  - Product quality issue [Unknown]
  - Hospitalisation [Unknown]
  - Oxygen saturation decreased [Recovering/Resolving]

NARRATIVE: CASE EVENT DATE: 201211
